FAERS Safety Report 7627025-7 (Version None)
Quarter: 2011Q3

REPORT INFORMATION
  Report Type: 
  Country: None (occurrence: None)
  Receive Date: 20110721
  Receipt Date: 20110503
  Transmission Date: 20111222
  Serious: No
  Sender: FDA-Public Use
  Company Number: US-BAYER-2011-039753

PATIENT

DRUGS (2)
  1. ALEVE (CAPLET) [Suspect]
     Indication: BACK PAIN
     Dosage: 2 DF, ONCE
     Route: 048
  2. TIGER BALM [Suspect]
     Indication: BACK PAIN
     Dosage: 1 DF, ONCE
     Route: 061

REACTIONS (1)
  - BACK PAIN [None]
